FAERS Safety Report 4963468-8 (Version None)
Quarter: 2006Q2

REPORT INFORMATION
  Report Type: 
  Country: None (occurrence: None)
  Receive Date: 20060404
  Receipt Date: 20060404
  Transmission Date: 20061013
  Serious: Yes (Hospitalization)
  Sender: FDA-Public Use
  Company Number: None

PATIENT
  Age: 87 Year
  Sex: Male
  Weight: 74.8435 kg

DRUGS (2)
  1. DIVALPROEX SODIUM [Suspect]
     Indication: BIPOLAR DISORDER
     Dosage: 500 MG PO BID , 1000 MG QHS
     Route: 048
  2. TOPIRAMATE [Suspect]
     Dosage: 25 MG PO BID
     Route: 048

REACTIONS (3)
  - ASTHENIA [None]
  - BLOOD PRESSURE ORTHOSTATIC ABNORMAL [None]
  - PANCYTOPENIA [None]
